FAERS Safety Report 9100884 (Version 2)
Quarter: 2013Q1

REPORT INFORMATION
  Report Type: Spontaneous
  Country: US (occurrence: None)
  Receive Date: 20130220
  Receipt Date: 20130220
  Transmission Date: 20140127
  Serious: Yes (Death)
  Sender: FDA-Public Use
  Company Number: None

PATIENT
  Age: 29 Year
  Sex: Female
  Weight: 95.26 kg

DRUGS (1)
  1. ZOFRAN [Suspect]

REACTIONS (6)
  - Stevens-Johnson syndrome [None]
  - Toxic epidermal necrolysis [None]
  - Exposure during pregnancy [None]
  - Cardiac arrest [None]
  - Hypotension [None]
  - Hypovolaemia [None]
